FAERS Safety Report 7272340-2 (Version None)
Quarter: 2011Q1

REPORT INFORMATION
  Report Type: 
  Country: None (occurrence: None)
  Receive Date: 20110203
  Receipt Date: 20110125
  Transmission Date: 20110831
  Serious: Yes (Death, Life-Threatening, Hospitalization, Other)
  Sender: FDA-Public Use
  Company Number: US-ACTELION-A-NJ2010-43015

PATIENT

DRUGS (3)
  1. WARFARIN SODIUM [Concomitant]
  2. TRACLEER [Suspect]
     Dosage: 62.5 MG, BID
     Route: 048
     Dates: start: 20060114, end: 20080901
  3. TRACLEER [Suspect]
     Indication: PULMONARY ARTERIAL HYPERTENSION
     Dosage: 125 MG, BID
     Route: 048
     Dates: start: 20080902, end: 20101208

REACTIONS (3)
  - RESPIRATORY FAILURE [None]
  - DEATH [None]
  - ENCEPHALOPATHY [None]
